FAERS Safety Report 6098617-4 (Version None)
Quarter: 2009Q1

REPORT INFORMATION
  Report Type: 
  Country: None (occurrence: None)
  Receive Date: 20090302
  Receipt Date: 20090224
  Transmission Date: 20090719
  Serious: Yes (Other)
  Sender: FDA-Public Use
  Company Number: FI-BRISTOL-MYERS SQUIBB COMPANY-14520142

PATIENT

DRUGS (1)
  1. DASATINIB [Suspect]
     Indication: LEUKAEMIA

REACTIONS (5)
  - COLITIS [None]
  - CYTOMEGALOVIRUS INFECTION [None]
  - LARGE GRANULAR LYMPHOCYTOSIS [None]
  - LUNG INFILTRATION [None]
  - PLEURAL EFFUSION [None]
